FAERS Safety Report 10924983 (Version 2)
Quarter: 2015Q2

REPORT INFORMATION
  Report Type: Spontaneous
  Country: US (occurrence: US)
  Receive Date: 20150318
  Receipt Date: 20150524
  Transmission Date: 20150821
  Serious: No
  Sender: FDA-Public Use
  Company Number: US-JNJFOC-20140103545

PATIENT
  Age: 79 Year
  Sex: Male
  Weight: 90.72 kg

DRUGS (2)
  1. NIZORAL [Suspect]
     Active Substance: KETOCONAZOLE
     Route: 048
  2. NIZORAL [Suspect]
     Active Substance: KETOCONAZOLE
     Indication: PSORIASIS
     Dosage: QUARTER SIZE FOR YEARS
     Route: 048

REACTIONS (3)
  - Drug prescribing error [Unknown]
  - Therapeutic response unexpected [Unknown]
  - Product use issue [Unknown]
